FAERS Safety Report 7768839-2 (Version None)
Quarter: 2011Q3

REPORT INFORMATION
  Report Type: 
  Country: None (occurrence: None)
  Receive Date: 20110922
  Receipt Date: 20110909
  Transmission Date: 20111222
  Serious: No
  Sender: FDA-Public Use
  Company Number: US-B.I. PHARMACEUTICALS,INC./RIDGEFIELD-2011-BP-21923BP

PATIENT
  Age: 74 Year
  Sex: Male

DRUGS (15)
  1. PRADAXA [Suspect]
     Indication: ATRIAL FIBRILLATION
     Dosage: 300 MG
     Route: 048
     Dates: start: 20110902, end: 20110904
  2. MULTAQ [Concomitant]
     Indication: HYPERTENSION
     Route: 048
  3. LISINOPRIL [Concomitant]
     Indication: HYPERTENSION
     Route: 048
  4. VYTORIN [Concomitant]
     Indication: BLOOD CHOLESTEROL INCREASED
     Route: 048
  5. LORATADINE [Concomitant]
     Indication: SEASONAL ALLERGY
     Route: 048
  6. FISH OIL [Concomitant]
     Indication: SUPPLEMENTATION THERAPY
     Route: 048
  7. ISOSORBIDE DINITRATE [Concomitant]
     Indication: HYPERTENSION
     Route: 048
  8. TRIPLE FLEX [Concomitant]
     Indication: SUPPLEMENTATION THERAPY
     Route: 048
  9. DIGOXIN [Concomitant]
     Indication: ATRIAL FIBRILLATION
     Route: 048
  10. FLAXSEED OIL [Concomitant]
     Indication: SUPPLEMENTATION THERAPY
     Route: 048
  11. CELEBREX [Concomitant]
     Indication: ARTHRITIS
     Route: 048
  12. ASPIRIN [Concomitant]
     Indication: ATRIAL FIBRILLATION
     Route: 048
  13. METOPROLOL TARTRATE [Concomitant]
     Indication: HYPERTENSION
     Route: 048
  14. COQ10 [Concomitant]
     Indication: SUPPLEMENTATION THERAPY
     Route: 048
  15. PLAVIX [Concomitant]
     Indication: ATRIAL FIBRILLATION
     Route: 048

REACTIONS (2)
  - INSOMNIA [None]
  - ANXIETY [None]
